FAERS Safety Report 21929508 (Version 2)
Quarter: 2025Q1

REPORT INFORMATION
  Report Type: Spontaneous
  Country: US (occurrence: US)
  Receive Date: 20230131
  Receipt Date: 20250227
  Transmission Date: 20250409
  Serious: Yes (Other)
  Sender: UCB
  Company Number: US-UCBSA-2022048349

PATIENT
  Sex: Female

DRUGS (9)
  1. LEVETIRACETAM [Suspect]
     Active Substance: LEVETIRACETAM
     Indication: Seizure
  2. LEVETIRACETAM [Suspect]
     Active Substance: LEVETIRACETAM
  3. MIDAZOLAM [Suspect]
     Active Substance: MIDAZOLAM
     Indication: Seizure
  4. PHENOBARBITAL [Suspect]
     Active Substance: PHENOBARBITAL
     Indication: Seizure
  5. TOPIRAMATE [Suspect]
     Active Substance: TOPIRAMATE
     Indication: Seizure
  6. VIGABATRIN [Suspect]
     Active Substance: VIGABATRIN
     Indication: Seizure
  7. VIGABATRIN [Suspect]
     Active Substance: VIGABATRIN
  8. VALPROIC ACID [Suspect]
     Active Substance: VALPROIC ACID
     Indication: Seizure
  9. CLOBAZAM [Suspect]
     Active Substance: CLOBAZAM
     Indication: Seizure

REACTIONS (2)
  - Seizure [Recovering/Resolving]
  - Multiple-drug resistance [Unknown]
